FAERS Safety Report 4477266-5 (Version None)
Quarter: 2004Q4

REPORT INFORMATION
  Report Type: 
  Country: None (occurrence: None)
  Receive Date: 20041018
  Receipt Date: 20031215
  Transmission Date: 20050328
  Serious: No
  Sender: FDA-Public Use
  Company Number: US-GLAXOSMITHKLINE-A0443201A

PATIENT
  Age: 11 Month
  Sex: Female

DRUGS (1)
  1. CEFTIN [Suspect]
     Indication: OTITIS MEDIA ACUTE
     Dosage: 125MG TWICE PER DAY
     Route: 048
     Dates: start: 20031214

REACTIONS (1)
  - HAEMATOCHEZIA [None]
